FAERS Safety Report 7401926-7 (Version None)
Quarter: 2011Q1

REPORT INFORMATION
  Report Type: 
  Country: None (occurrence: None)
  Receive Date: 20110330
  Receipt Date: 20110317
  Transmission Date: 20110831
  Serious: Yes (Life-Threatening, Other)
  Sender: FDA-Public Use
  Company Number: 2011AP000478

PATIENT
  Age: 24 Year
  Sex: Female

DRUGS (4)
  1. BUPROPION HCL [Concomitant]
  2. LAMOTRIGINE [Suspect]
     Indication: AFFECTIVE DISORDER
     Dosage: 25 MG; PO
     Route: 048
     Dates: start: 20110221, end: 20110303
  3. ISOTRETINOIN [Concomitant]
  4. CITALOPRAM (CITALOPRAM) [Concomitant]

REACTIONS (3)
  - DRUG HYPERSENSITIVITY [None]
  - DERMATITIS ALLERGIC [None]
  - PHARYNGEAL OEDEMA [None]
